FAERS Safety Report 4603897-5 (Version None)
Quarter: 2005Q1

REPORT INFORMATION
  Report Type: 
  Country: None (occurrence: None)
  Receive Date: 20050310
  Receipt Date: 20050112
  Transmission Date: 20050727
  Serious: Yes (Other)
  Sender: FDA-Public Use
  Company Number: GB-ROCHE-392313

PATIENT
  Age: 18 Year
  Sex: Male

DRUGS (3)
  1. ROACCUTANE [Suspect]
     Indication: ACNE
     Route: 048
     Dates: start: 20021015, end: 20030315
  2. MINOCYN [Concomitant]
     Indication: ACNE
     Route: 048
     Dates: start: 20011015, end: 20020615
  3. ERYTHROMYCIN [Concomitant]
     Indication: ACNE
     Route: 048
     Dates: start: 20010515, end: 20011015

REACTIONS (1)
  - TOOTH DISCOLOURATION [None]
